FAERS Safety Report 7623616-8 (Version None)
Quarter: 2011Q3

REPORT INFORMATION
  Report Type: 
  Country: None (occurrence: None)
  Receive Date: 20110720
  Receipt Date: 20110718
  Transmission Date: 20111222
  Serious: Yes (Hospitalization)
  Sender: FDA-Public Use
  Company Number: US-B.I. PHARMACEUTICALS,INC./RIDGEFIELD-2011-BP-17922BP

PATIENT
  Age: 81 Year
  Sex: Female

DRUGS (7)
  1. VITAMIN D [Concomitant]
     Indication: ROUTINE HEALTH MAINTENANCE
     Dosage: 50000 U
     Route: 048
     Dates: start: 20110601
  2. LASIX [Concomitant]
     Indication: CARDIAC FAILURE CONGESTIVE
     Dosage: 40 MG
     Route: 048
     Dates: start: 20110101
  3. TAPAZOLE [Concomitant]
     Indication: HYPERTHYROIDISM
     Dosage: 5 MG
     Route: 048
     Dates: start: 20090101
  4. ATENOLOL [Concomitant]
     Indication: ATRIAL FIBRILLATION
     Dosage: 100 MG
     Route: 048
     Dates: start: 20090101
  5. COLACE [Concomitant]
     Indication: CONSTIPATION
     Dates: start: 20100101
  6. PRADAXA [Suspect]
     Indication: ATRIAL FIBRILLATION
     Dosage: 150 MG
     Route: 048
     Dates: start: 20110401, end: 20110601
  7. ATENOLOL [Concomitant]
     Indication: HYPERTENSION

REACTIONS (2)
  - GASTROINTESTINAL HAEMORRHAGE [None]
  - DIVERTICULITIS [None]
